FAERS Safety Report 15428661 (Version 2)
Quarter: 2019Q1

REPORT INFORMATION
  Report Type: Report from Study
  Country: US (occurrence: US)
  Receive Date: 20180926
  Receipt Date: 20190211
  Transmission Date: 20190417
  Serious: No
  Sender: FDA-Public Use
  Company Number: PHHY2018US106616

PATIENT
  Sex: Male

DRUGS (1)
  1. COSENTYX [Suspect]
     Active Substance: SECUKINUMAB
     Indication: PSORIASIS
     Dosage: 300 MG, Q4W (INJECT 2 PENS)
     Route: 058
     Dates: start: 20180116

REACTIONS (5)
  - Miliaria [Unknown]
  - Feeling abnormal [Unknown]
  - Psoriasis [Unknown]
  - Skin lesion [Unknown]
  - Skin fissures [Unknown]
